FAERS Safety Report 25040937 (Version 1)
Quarter: 2025Q1

REPORT INFORMATION
  Report Type: Spontaneous
  Country: JP (occurrence: JP)
  Receive Date: 20250305
  Receipt Date: 20250305
  Transmission Date: 20250409
  Serious: Yes (Other)
  Sender: TAKEDA
  Company Number: JP-teijin-202500801_TDV-X_P_1

PATIENT
  Age: 45 Year
  Sex: Male

DRUGS (1)
  1. ALOGLIPTIN BENZOATE\PIOGLITAZONE HYDROCHLORIDE [Suspect]
     Active Substance: ALOGLIPTIN BENZOATE\PIOGLITAZONE HYDROCHLORIDE
     Indication: Product used for unknown indication

REACTIONS (5)
  - Altered state of consciousness [Unknown]
  - Renal impairment [Unknown]
  - Intentional overdose [Unknown]
  - Blood pressure decreased [Unknown]
  - Acidosis [Unknown]

NARRATIVE: CASE EVENT DATE: 20250223
